FAERS Safety Report 7028804-X (Version None)
Quarter: 2010Q4

REPORT INFORMATION
  Report Type: 
  Country: None (occurrence: None)
  Receive Date: 20101005
  Receipt Date: 20100924
  Transmission Date: 20110411
  Serious: Yes (Hospitalization)
  Sender: FDA-Public Use
  Company Number: US-SANOFI-AVENTIS-2010SA058366

PATIENT
  Age: 66 Year
  Sex: Female

DRUGS (3)
  1. LANTUS [Suspect]
     Indication: TYPE 1 DIABETES MELLITUS
     Dosage: DOSE:20 UNIT(S)
     Route: 058
     Dates: start: 20080101
  2. HUMALOG [Suspect]
     Indication: TYPE 1 DIABETES MELLITUS
     Dosage: 35 UNITS IN THE MORNING AND IN THE EVENING DOSE:35 UNIT(S)
     Route: 065
     Dates: start: 19830101, end: 20100901
  3. HUMALOG [Suspect]
     Dosage: 40 UNITS IN THE MORNING AND IN THE EVENING DOSE:40 UNIT(S)
     Route: 065
     Dates: start: 20100901

REACTIONS (2)
  - BLOOD GLUCOSE INCREASED [None]
  - PNEUMONIA [None]
